FAERS Safety Report 9553946 (Version 2)
Quarter: 2013Q4

REPORT INFORMATION
  Report Type: Spontaneous
  Country: US (occurrence: US)
  Receive Date: 20130925
  Receipt Date: 20131010
  Transmission Date: 20140711
  Serious: No
  Sender: FDA-Public Use
  Company Number: US-TEVA-434586USA

PATIENT
  Age: 26 Year
  Sex: Female
  Weight: 122.58 kg

DRUGS (1)
  1. PLAN B ONE-STEP [Suspect]
     Indication: POST COITAL CONTRACEPTION
     Dosage: 1.5 MILLIGRAM DAILY;
     Route: 048
     Dates: start: 20130915, end: 20130915

REACTIONS (2)
  - Menstruation delayed [Recovered/Resolved]
  - Pelvic pain [Recovered/Resolved]
